FAERS Safety Report 19271518 (Version 2)
Quarter: 2021Q4

REPORT INFORMATION
  Report Type: Spontaneous
  Country: US (occurrence: US)
  Receive Date: 20210519
  Receipt Date: 20211115
  Transmission Date: 20220303
  Serious: No
  Sender: FDA-Public Use
  Company Number: US-BRISTOL-MYERS SQUIBB COMPANY-BMS-2021-046235

PATIENT
  Age: 90 Year
  Sex: Male
  Weight: 83.914 kg

DRUGS (3)
  1. OPDIVO [Suspect]
     Active Substance: NIVOLUMAB
     Indication: Lung neoplasm malignant
     Dosage: EVERY OTHER WEEK
     Route: 042
     Dates: start: 2016, end: 2020
  2. OPDIVO [Suspect]
     Active Substance: NIVOLUMAB
     Indication: Bladder cancer
  3. METOPROLOL [Concomitant]
     Active Substance: METOPROLOL
     Indication: Cardiac disorder
     Dosage: 25 MILLIGRAM
     Route: 065

REACTIONS (2)
  - Fatigue [Unknown]
  - Thyroid disorder [Unknown]
